FAERS Safety Report 5121507-8 (Version None)
Quarter: 2006Q4

REPORT INFORMATION
  Report Type: 
  Country: None (occurrence: None)
  Receive Date: 20061006
  Receipt Date: 20060817
  Transmission Date: 20070319
  Serious: Yes (Death)
  Sender: FDA-Public Use
  Company Number: DE-BRISTOL-MYERS SQUIBB COMPANY-13482369

PATIENT
  Age: 61 Year
  Sex: Male
  Weight: 123 kg

DRUGS (4)
  1. ABILIFY [Suspect]
     Indication: DELUSION
     Route: 048
     Dates: start: 20060411, end: 20060501
  2. ZYPREXA [Suspect]
     Indication: SCHIZOPHRENIA
     Dates: start: 20050201, end: 20060314
  3. HALOPERIDOL DECANOATE [Concomitant]
     Indication: SCHIZOPHRENIA
     Dates: start: 20060422
  4. ZOLOFT [Concomitant]
     Indication: OBSESSIVE-COMPULSIVE DISORDER
     Dates: start: 20060314, end: 20060501

REACTIONS (2)
  - CARDIAC FAILURE CONGESTIVE [None]
  - PULMONARY EMBOLISM [None]
